FAERS Safety Report 25902141 (Version 1)
Quarter: 2025Q4

REPORT INFORMATION
  Report Type: Spontaneous
  Country: US (occurrence: None)
  Receive Date: 20251008
  Receipt Date: 20251008
  Transmission Date: 20260117
  Serious: Yes (Hospitalization)
  Sender: FDA-CTU
  Company Number: None

PATIENT
  Sex: Male

DRUGS (2)
  1. ENBREL [Suspect]
     Active Substance: ETANERCEPT
     Indication: Rheumatoid arthritis
     Dosage: OTHER FREQUENCY : EVERY 7 DAYS;?
     Route: 058
     Dates: start: 20241025
  2. ENBREL [Suspect]
     Active Substance: ETANERCEPT
     Indication: Fibromyalgia

REACTIONS (3)
  - Hypersensitivity [None]
  - Therapy cessation [None]
  - Respiratory tract infection [None]
